FAERS Safety Report 15895118 (Version 2)
Quarter: 2019Q1

REPORT INFORMATION
  Report Type: Report from Study
  Country: US (occurrence: US)
  Receive Date: 20190131
  Receipt Date: 20190313
  Transmission Date: 20190417
  Serious: Yes (Hospitalization)
  Sender: FDA-Public Use
  Company Number: US-ROCHE-2251544

PATIENT
  Sex: Female

DRUGS (8)
  1. SUBOXONE [Concomitant]
     Active Substance: BUPRENORPHINE HYDROCHLORIDE\NALOXONE HYDROCHLORIDE
  2. VITAMIN A [Concomitant]
     Active Substance: VITAMIN A
  3. DULOXETINE. [Concomitant]
     Active Substance: DULOXETINE
  4. VITAMIN E [Concomitant]
     Active Substance: .ALPHA.-TOCOPHEROL
  5. ACTEMRA [Suspect]
     Active Substance: TOCILIZUMAB
     Dosage: WEEKLY; ONGOING:YES
     Route: 058
     Dates: start: 20180606
  6. LISINOPRIL. [Concomitant]
     Active Substance: LISINOPRIL
  7. ACTEMRA [Suspect]
     Active Substance: TOCILIZUMAB
     Indication: RHEUMATOID ARTHRITIS
     Dosage: WEEKLY; ONGOING:YES
     Route: 058
     Dates: start: 20131220
  8. BUSPIRONE [Concomitant]
     Active Substance: BUSPIRONE HYDROCHLORIDE

REACTIONS (2)
  - Pneumonia [Unknown]
  - Haematemesis [Unknown]
